FAERS Safety Report 4912962-4 (Version None)
Quarter: 2006Q1

REPORT INFORMATION
  Report Type: 
  Country: None (occurrence: None)
  Receive Date: 20060210
  Receipt Date: 20060127
  Transmission Date: 20060701
  Serious: Yes (Death)
  Sender: FDA-Public Use
  Company Number: L05-USA-03935-43

PATIENT
  Age: 24 Year
  Sex: Female

DRUGS (8)
  1. ESCITALOPRAM OXALATE [Suspect]
  2. AMITRIPTYLINE HCL [Suspect]
  3. CHLORPROMAZINE [Suspect]
  4. MIRTAZAPINE [Suspect]
  5. ASPIRIN/BUTALBITAL/ACETAMINOPHEN [Suspect]
  6. MISOPROSTOL [Suspect]
  7. NABUMETONE [Suspect]
  8. DICLOFENAC [Suspect]

REACTIONS (1)
  - MULTIPLE DRUG OVERDOSE [None]
